FAERS Safety Report 5204826-6 (Version None)
Quarter: 2007Q1

REPORT INFORMATION
  Report Type: 
  Country: None (occurrence: None)
  Receive Date: 20070110
  Receipt Date: 20060726
  Transmission Date: 20070707
  Serious: No
  Sender: FDA-Public Use
  Company Number: US-BRISTOL-MYERS SQUIBB COMPANY-13456561

PATIENT
  Age: 35 Year

DRUGS (2)
  1. ABILIFY [Suspect]
     Indication: AUTISM
     Route: 048
     Dates: start: 20040226, end: 20040301
  2. LUVOX [Concomitant]

REACTIONS (1)
  - HICCUPS [None]
